FAERS Safety Report 9814836 (Version 2)
Quarter: 2014Q2

REPORT INFORMATION
  Report Type: Spontaneous
  Country: US (occurrence: US)
  Receive Date: 20140113
  Receipt Date: 20140409
  Transmission Date: 20141212
  Serious: Yes (Hospitalization)
  Sender: FDA-Public Use
  Company Number: US-GLAXOSMITHKLINE-A1055587A

PATIENT
  Age: 57 Year
  Sex: Male

DRUGS (4)
  1. VOTRIENT [Suspect]
     Indication: THYROID CANCER
     Dosage: 4TAB PER DAY
     Route: 048
     Dates: start: 201309
  2. CIPRO [Suspect]
     Indication: URINARY TRACT INFECTION
     Dosage: 250MG TWICE PER DAY
     Route: 065
     Dates: start: 20131230, end: 20140102
  3. LEVOTHYROXINE [Concomitant]
  4. LISINOPRIL + HYDROCHLOROTHIAZIDE [Concomitant]

REACTIONS (8)
  - Loss of consciousness [Recovered/Resolved]
  - Urinary tract infection [Recovered/Resolved]
  - Decreased appetite [Recovered/Resolved]
  - Dehydration [Recovered/Resolved]
  - Hair colour changes [Recovered/Resolved]
  - Abdominal discomfort [Recovered/Resolved]
  - Weight decreased [Recovered/Resolved]
  - Drug interaction [Recovered/Resolved]
